FAERS Safety Report 19118200 (Version 3)
Quarter: 2021Q3

REPORT INFORMATION
  Report Type: Spontaneous
  Country: GB (occurrence: GB)
  Receive Date: 20210409
  Receipt Date: 20210726
  Transmission Date: 20211014
  Serious: Yes (Hospitalization, Other)
  Sender: FDA-Public Use
  Company Number: IT-SUNOVION-2021SUN001306

PATIENT
  Age: 32 Year
  Sex: Male

DRUGS (4)
  1. OLANZAPINE. [Concomitant]
     Active Substance: OLANZAPINE
     Indication: PRODUCT USED FOR UNKNOWN INDICATION
     Dosage: UNK
     Dates: start: 20160412, end: 20200611
  2. LURASIDONE HYDROCHLORIDE. [Suspect]
     Active Substance: LURASIDONE HYDROCHLORIDE
     Indication: PRODUCT USED FOR UNKNOWN INDICATION
     Dosage: INCREASED DOSAGE TO 74MG
     Route: 048
     Dates: start: 20190529
  3. QUETIAPINE. [Suspect]
     Active Substance: QUETIAPINE
     Indication: PRODUCT USED FOR UNKNOWN INDICATION
     Dosage: UNK
     Dates: start: 201603, end: 201603
  4. ARIPIPRAZOLE. [Suspect]
     Active Substance: ARIPIPRAZOLE
     Indication: PRODUCT USED FOR UNKNOWN INDICATION
     Dosage: UNK
     Dates: start: 201703, end: 201711

REACTIONS (7)
  - Intentional self-injury [Unknown]
  - Aggression [Unknown]
  - Mental disorder [Unknown]
  - Treatment noncompliance [Unknown]
  - Suicidal ideation [Unknown]
  - Condition aggravated [Unknown]
  - Insomnia [Unknown]

NARRATIVE: CASE EVENT DATE: 20190326
